FAERS Safety Report 23193210 (Version 1)
Quarter: 2023Q4

REPORT INFORMATION
  Report Type: Other
  Country: RU (occurrence: None)
  Receive Date: 20231116
  Receipt Date: 20231116
  Transmission Date: 20240110
  Serious: Yes (Life-Threatening)
  Sender: FDA-Public Use
  Company Number: RU-ROCHE-3454045

PATIENT
  Sex: Female

DRUGS (3)
  1. VEMURAFENIB [Suspect]
     Active Substance: VEMURAFENIB
     Indication: Product used for unknown indication
     Route: 065
  2. ATEZOLIZUMAB [Suspect]
     Active Substance: ATEZOLIZUMAB
     Indication: Product used for unknown indication
     Route: 065
  3. COBIMETINIB [Suspect]
     Active Substance: COBIMETINIB
     Indication: Product used for unknown indication
     Route: 048

REACTIONS (3)
  - Immune-mediated hepatitis [Recovered/Resolved]
  - Drug-induced liver injury [Recovered/Resolved]
  - Erythema nodosum [Not Recovered/Not Resolved]

NARRATIVE: CASE EVENT DATE: 20230309
